FAERS Safety Report 16846494 (Version 2)
Quarter: 2020Q3

REPORT INFORMATION
  Report Type: Spontaneous
  Country: US (occurrence: US)
  Receive Date: 20190924
  Receipt Date: 20200819
  Transmission Date: 20201102
  Serious: Yes (Hospitalization, Other)
  Sender: FDA-Public Use
  Company Number: US-ASTRAZENECA-2019SF32010

PATIENT
  Age: 25131 Day
  Sex: Male
  Weight: 115.2 kg

DRUGS (69)
  1. FARXIGA [Suspect]
     Active Substance: DAPAGLIFLOZIN PROPANEDIOL
     Indication: WEIGHT DECREASED
     Route: 048
     Dates: start: 20160719
  2. HUMALOG [Concomitant]
     Active Substance: INSULIN LISPRO
     Dates: start: 20180627
  3. SODIUM CHLORIDE. [Concomitant]
     Active Substance: SODIUM CHLORIDE
     Dates: start: 20180627
  4. MORPHINE [Concomitant]
     Active Substance: MORPHINE
  5. TAZOBACTAM [Concomitant]
     Active Substance: TAZOBACTAM
  6. FUROSEMIDE. [Concomitant]
     Active Substance: FUROSEMIDE
     Dates: start: 20180627
  7. MAGNESIUM [Concomitant]
     Active Substance: MAGNESIUM
  8. POTASSIUM CHLORIDE. [Concomitant]
     Active Substance: POTASSIUM CHLORIDE
  9. ELECTROLYTE [Concomitant]
     Active Substance: UNSPECIFIED INGREDIENT
  10. CIPROFLOXACIN. [Concomitant]
     Active Substance: CIPROFLOXACIN
  11. FARXIGA [Suspect]
     Active Substance: DAPAGLIFLOZIN PROPANEDIOL
     Indication: TYPE 2 DIABETES MELLITUS
     Route: 048
     Dates: start: 20160719
  12. COLACE [Concomitant]
     Active Substance: DOCUSATE SODIUM
  13. TYLENOL [Concomitant]
     Active Substance: ACETAMINOPHEN
  14. METFORMIN [Concomitant]
     Active Substance: METFORMIN HYDROCHLORIDE
     Dates: start: 20180623
  15. CLINDAMYCIN. [Concomitant]
     Active Substance: CLINDAMYCIN
     Dates: start: 20180623
  16. PROPOFOL. [Concomitant]
     Active Substance: PROPOFOL
     Dates: start: 20180626
  17. IBUPROFEN. [Concomitant]
     Active Substance: IBUPROFEN
     Dates: start: 20180623
  18. ROCURONIUM [Concomitant]
     Active Substance: ROCURONIUM BROMIDE
  19. PROTHROMBIN [Concomitant]
     Active Substance: PROTHROMBIN
  20. HEPARIN [Concomitant]
     Active Substance: HEPARIN SODIUM
  21. WHITE PETROLATUM?MINERAL OIL [Concomitant]
  22. AMOXICILLIN?CLAVULANATE [Concomitant]
     Active Substance: AMOXICILLIN\CLAVULANIC ACID
  23. HYDRALAZINE [Concomitant]
     Active Substance: HYDRALAZINE HYDROCHLORIDE
  24. ENOXAPARIN [Concomitant]
     Active Substance: ENOXAPARIN
  25. PREVNAR [Concomitant]
     Active Substance: PNEUMOCOCCAL 7-VALENT CONJUGATE VACCINE (DIPHTHERIA CRM197 PROTEIN)
  26. FARXIGA [Suspect]
     Active Substance: DAPAGLIFLOZIN PROPANEDIOL
     Indication: WEIGHT DECREASED
     Route: 048
     Dates: start: 20170720
  27. PERCOCET [Concomitant]
     Active Substance: ACETAMINOPHEN\OXYCODONE HYDROCHLORIDE
  28. HYDROCHLOROTHIAZIDE. [Concomitant]
     Active Substance: HYDROCHLOROTHIAZIDE
  29. PEPCID [Concomitant]
     Active Substance: FAMOTIDINE
     Dates: start: 20180627
  30. MUPIROCIN. [Concomitant]
     Active Substance: MUPIROCIN
  31. LIDOCAINE. [Concomitant]
     Active Substance: LIDOCAINE
  32. FARXIGA [Suspect]
     Active Substance: DAPAGLIFLOZIN PROPANEDIOL
     Indication: BLOOD PRESSURE DECREASED
     Route: 048
     Dates: start: 20160719
  33. FARXIGA [Suspect]
     Active Substance: DAPAGLIFLOZIN PROPANEDIOL
     Indication: BLOOD PRESSURE DECREASED
     Route: 048
     Dates: start: 20170720
  34. FARXIGA [Suspect]
     Active Substance: DAPAGLIFLOZIN PROPANEDIOL
     Indication: TYPE 2 DIABETES MELLITUS
     Dosage: GENERIC
     Route: 048
     Dates: start: 20180623
  35. AMLODIPINE [Concomitant]
     Active Substance: AMLODIPINE BESYLATE
     Dates: start: 20180623
  36. ATORVASTATIN [Concomitant]
     Active Substance: ATORVASTATIN
  37. VANCOMYCIN [Concomitant]
     Active Substance: VANCOMYCIN
     Dates: start: 20180625
  38. IOPAMIDOL [Concomitant]
     Active Substance: IOPAMIDOL
  39. ZOFRAN [Concomitant]
     Active Substance: ONDANSETRON HYDROCHLORIDE
  40. IPRATROPIUM?ALBUTEROL [Concomitant]
     Active Substance: ALBUTEROL\IPRATROPIUM
  41. ONDANSETRON [Concomitant]
     Active Substance: ONDANSETRON
  42. BUPIVACAINE. [Concomitant]
     Active Substance: BUPIVACAINE
  43. DEXTROSE. [Concomitant]
     Active Substance: DEXTROSE
  44. PNEUMOVAX 23 [Concomitant]
     Active Substance: PNEUMOCOCCAL VACCINE, POLYVALENT 23
  45. ASPIRIN. [Concomitant]
     Active Substance: ASPIRIN
  46. FENTANYL. [Concomitant]
     Active Substance: FENTANYL
     Dates: start: 20180625
  47. DOCUSATE [Concomitant]
     Active Substance: DOCUSATE
  48. OXYCODONE [Concomitant]
     Active Substance: OXYCODONE
  49. SUGAMMADEX [Concomitant]
     Active Substance: SUGAMMADEX
  50. FARXIGA [Suspect]
     Active Substance: DAPAGLIFLOZIN PROPANEDIOL
     Indication: WEIGHT DECREASED
     Dosage: GENERIC
     Route: 048
     Dates: start: 20180623
  51. MIRALAX [Concomitant]
     Active Substance: POLYETHYLENE GLYCOL 3350
  52. LISINOPRIL. [Concomitant]
     Active Substance: LISINOPRIL
  53. PHOSPHATE [Concomitant]
     Active Substance: UNSPECIFIED INGREDIENT
  54. FINASTERIDE. [Concomitant]
     Active Substance: FINASTERIDE
  55. STARLIX [Concomitant]
     Active Substance: NATEGLINIDE
  56. FARXIGA [Suspect]
     Active Substance: DAPAGLIFLOZIN PROPANEDIOL
     Indication: TYPE 2 DIABETES MELLITUS
     Route: 048
     Dates: start: 20170720
  57. SENOKOT [Concomitant]
     Active Substance: SENNOSIDES
  58. NICOTINE. [Concomitant]
     Active Substance: NICOTINE
  59. LACTIC ACID. [Concomitant]
     Active Substance: LACTIC ACID
  60. NYSTATIN. [Concomitant]
     Active Substance: NYSTATIN
  61. INSULIN, REGULAR [Concomitant]
     Active Substance: INSULIN NOS
  62. ZOCOR [Concomitant]
     Active Substance: SIMVASTATIN
  63. FARXIGA [Suspect]
     Active Substance: DAPAGLIFLOZIN PROPANEDIOL
     Indication: BLOOD PRESSURE DECREASED
     Dosage: GENERIC
     Route: 048
     Dates: start: 20180623
  64. GLUCAGON. [Concomitant]
     Active Substance: GLUCAGON
  65. GLIPIZIDE. [Concomitant]
     Active Substance: GLIPIZIDE
  66. PIPERACILLIN. [Concomitant]
     Active Substance: PIPERACILLIN SODIUM
  67. ZOSYN [Concomitant]
     Active Substance: PIPERACILLIN SODIUM\TAZOBACTAM SODIUM
  68. MIDAZOLAM. [Concomitant]
     Active Substance: MIDAZOLAM
  69. CEFAZOLIN [Concomitant]
     Active Substance: CEFAZOLIN

REACTIONS (4)
  - Scrotal abscess [Unknown]
  - Perirectal abscess [Unknown]
  - Fournier^s gangrene [Unknown]
  - Sepsis [Unknown]

NARRATIVE: CASE EVENT DATE: 20180623
